FAERS Safety Report 24849773 (Version 3)
Quarter: 2025Q1

REPORT INFORMATION
  Report Type: Spontaneous
  Country: SE (occurrence: SE)
  Receive Date: 20250116
  Receipt Date: 20250214
  Transmission Date: 20250409
  Serious: Yes (Life-Threatening, Hospitalization)
  Sender: PFIZER
  Company Number: None

PATIENT
  Age: 11 Year
  Sex: Male
  Weight: 43 kg

DRUGS (3)
  1. CLINDAMYCIN PHOSPHATE [Suspect]
     Active Substance: CLINDAMYCIN PHOSPHATE
     Indication: Arthritis bacterial
     Dosage: 90 ML, 3X/DAY (EVERY 8 HOUR, ACCORDING TO DILUTION INSTRUCTION FOR CHILDREN 5 MG/ML)
     Route: 042
     Dates: start: 20241230, end: 20250101
  2. CEFOTAXIME [Concomitant]
     Active Substance: CEFOTAXIME SODIUM
     Dosage: 50 MG/KG, 3X/DAY (EVERY 8 HOUR)
     Route: 042
     Dates: start: 20241229, end: 20250101
  3. CEFOTAXIME [Concomitant]
     Active Substance: CEFOTAXIME SODIUM
     Dosage: 20 MG/KG, 3X/DAY
     Route: 042
     Dates: start: 20241229, end: 20250102

REACTIONS (6)
  - Stevens-Johnson syndrome [Recovering/Resolving]
  - Rash maculo-papular [Recovering/Resolving]
  - Blister [Recovering/Resolving]
  - Vasculitis [Unknown]
  - Erythema [Unknown]
  - Tongue blistering [Unknown]

NARRATIVE: CASE EVENT DATE: 20241230
